FAERS Safety Report 10639644 (Version 1)
Quarter: 2014Q4

REPORT INFORMATION
  Report Type: Spontaneous
  Country: US (occurrence: None)
  Receive Date: 20141205
  Receipt Date: 20141205
  Transmission Date: 20150529
  Serious: Yes (Other)
  Sender: FDA-Public Use
  Company Number: None

PATIENT
  Age: 62 Year
  Sex: Female
  Weight: 122.02 kg

DRUGS (1)
  1. VANCOMYCIN [Suspect]
     Active Substance: VANCOMYCIN
     Indication: DEVICE RELATED INFECTION
     Dosage: 750 GM, TWICE DAILY, PICC LINE
     Dates: start: 20140512, end: 20140616

REACTIONS (6)
  - Blood pressure increased [None]
  - Depression [None]
  - Hypersensitivity [None]
  - Hyperaesthesia [None]
  - Temperature intolerance [None]
  - Thinking abnormal [None]

NARRATIVE: CASE EVENT DATE: 20140616
